FAERS Safety Report 22119764 (Version 1)
Quarter: 2023Q1

REPORT INFORMATION
  Report Type: Spontaneous
  Country: US (occurrence: None)
  Receive Date: 20230321
  Receipt Date: 20230321
  Transmission Date: 20230417
  Serious: No
  Sender: FDA-Public Use
  Company Number: US-ROCHE-3145893

PATIENT
  Sex: Male

DRUGS (1)
  1. ERIVEDGE [Suspect]
     Active Substance: VISMODEGIB
     Indication: Drug therapy
     Route: 048

REACTIONS (5)
  - Dizziness [Unknown]
  - Dehydration [Unknown]
  - Pyrexia [Unknown]
  - Off label use [Unknown]
  - Arthralgia [Unknown]
